FAERS Safety Report 10948537 (Version 2)
Quarter: 2015Q2

REPORT INFORMATION
  Report Type: Spontaneous
  Country: AU (occurrence: AU)
  Receive Date: 20150324
  Receipt Date: 20150429
  Transmission Date: 20150821
  Serious: Yes (Disabling)
  Sender: FDA-Public Use
  Company Number: AU-ROCHE-1555352

PATIENT
  Age: 51 Year
  Sex: Female
  Weight: 56 kg

DRUGS (13)
  1. RIBAVIRIN. [Concomitant]
     Active Substance: RIBAVIRIN
     Indication: HEPATITIS C
     Route: 065
     Dates: start: 20130805
  2. RAMIPRIL. [Concomitant]
     Active Substance: RAMIPRIL
     Indication: HYPERTENSION
     Route: 048
     Dates: start: 20130205, end: 201309
  3. FRUSEMIDE [Concomitant]
     Active Substance: FUROSEMIDE
     Indication: FLUID OVERLOAD
     Route: 048
     Dates: start: 20130205, end: 201502
  4. METHYLPREDNISOLON [Concomitant]
     Active Substance: METHYLPREDNISOLONE
     Indication: VASCULITIS CEREBRAL
     Route: 042
     Dates: start: 20150307, end: 20150309
  5. PREDNISOLONE. [Concomitant]
     Active Substance: PREDNISOLONE
     Indication: VASCULITIS CEREBRAL
     Dosage: 1 COURSE
     Route: 048
     Dates: start: 20150115, end: 20150216
  6. BOCEPREVIR [Concomitant]
     Active Substance: BOCEPREVIR
     Indication: HEPATITIS C
     Route: 065
     Dates: start: 20130805
  7. PEG-INTERFERON ALFA 2A [Concomitant]
     Active Substance: PEGINTERFERON ALFA-2A
     Indication: HEPATITIS C
     Dosage: FOR 48 WEEKS
     Route: 058
     Dates: start: 20130805
  8. PREDNISOLONE. [Concomitant]
     Active Substance: PREDNISOLONE
     Dosage: 1 COURSE
     Route: 048
     Dates: start: 20150310, end: 20150407
  9. LECARNIDIPINO [Concomitant]
     Indication: HYPERTENSION
     Route: 048
     Dates: start: 201302, end: 201306
  10. HYDROCHLOROTHIAZIDE. [Concomitant]
     Active Substance: HYDROCHLOROTHIAZIDE
     Indication: FLUID OVERLOAD
     Route: 048
     Dates: start: 201302, end: 201305
  11. PREDNISOLONE. [Concomitant]
     Active Substance: PREDNISOLONE
     Indication: CUTANEOUS VASCULITIS
     Dosage: 1 COURSE
     Route: 048
     Dates: start: 201409, end: 201411
  12. MABTHERA [Suspect]
     Active Substance: RITUXIMAB
     Indication: RENAL VASCULITIS
     Route: 042
     Dates: start: 20130228, end: 20130321
  13. PANTOPRAZOLE [Concomitant]
     Active Substance: PANTOPRAZOLE SODIUM
     Route: 048
     Dates: start: 201302

REACTIONS (2)
  - Progressive multifocal leukoencephalopathy [Not Recovered/Not Resolved]
  - Human polyomavirus infection [Not Recovered/Not Resolved]

NARRATIVE: CASE EVENT DATE: 20150306
